FAERS Safety Report 7540819-1 (Version None)
Quarter: 2011Q2

REPORT INFORMATION
  Report Type: 
  Country: None (occurrence: None)
  Receive Date: 20110603
  Receipt Date: 20110523
  Transmission Date: 20111010
  Serious: Yes (Death, Hospitalization)
  Sender: FDA-Public Use
  Company Number: DSA_45554_2011

PATIENT
  Age: 7 Month
  Sex: Female

DRUGS (1)
  1. CARDIZEM CD [Suspect]
     Indication: PRODUCT USED FOR UNKNOWN INDICATION
     Dosage: (DF)

REACTIONS (7)
  - GASTROINTESTINAL DISORDER [None]
  - CARDIAC FAILURE ACUTE [None]
  - GRAND MAL CONVULSION [None]
  - OVERDOSE [None]
  - CARDIAC ARREST [None]
  - ERYTHEMA [None]
  - GASTROINTESTINAL INFLAMMATION [None]
